FAERS Safety Report 14635805 (Version 1)
Quarter: 2018Q1

REPORT INFORMATION
  Report Type: Spontaneous
  Country: IL (occurrence: IL)
  Receive Date: 20180314
  Receipt Date: 20180314
  Transmission Date: 20180509
  Serious: Yes (Death)
  Sender: FDA-Public Use
  Company Number: IL-ELI_LILLY_AND_COMPANY-IL201803005476

PATIENT
  Age: 70 Year
  Sex: Male

DRUGS (3)
  1. TAXOL [Concomitant]
     Active Substance: PACLITAXEL
     Indication: HYPOPHARYNGEAL CANCER
     Dosage: 60 ML, DAILY
     Route: 042
  2. ERBITUX [Suspect]
     Active Substance: CETUXIMAB
     Indication: HYPOPHARYNGEAL CANCER
     Dosage: 250 MG/M2, DAILY
     Route: 042
     Dates: start: 20180103
  3. CARBOPLATIN. [Concomitant]
     Active Substance: CARBOPLATIN
     Indication: HYPOPHARYNGEAL CANCER
     Dosage: 100 ML, DAILY
     Route: 042

REACTIONS (4)
  - Asphyxia [Fatal]
  - Off label use [Unknown]
  - Haematemesis [Fatal]
  - Vascular rupture [Fatal]

NARRATIVE: CASE EVENT DATE: 20180109
